FAERS Safety Report 23000288 (Version 2)
Quarter: 2023Q4

REPORT INFORMATION
  Report Type: Spontaneous
  Country: US (occurrence: US)
  Receive Date: 20230928
  Receipt Date: 20231011
  Transmission Date: 20240110
  Serious: No
  Sender: FDA-Public Use
  Company Number: US-BIOGEN-2023BI01227798

PATIENT
  Sex: Female

DRUGS (1)
  1. TECFIDERA [Suspect]
     Active Substance: DIMETHYL FUMARATE
     Indication: Multiple sclerosis
     Route: 050
     Dates: start: 20180607

REACTIONS (4)
  - Muscle spasms [Recovered/Resolved with Sequelae]
  - Emotional distress [Unknown]
  - Fine motor skill dysfunction [Unknown]
  - Diarrhoea [Unknown]
